FAERS Safety Report 14225452 (Version 1)
Quarter: 2017Q4

REPORT INFORMATION
  Report Type: Spontaneous
  Country: CA (occurrence: CA)
  Receive Date: 20171126
  Receipt Date: 20171126
  Transmission Date: 20180321
  Serious: Yes (Other)
  Sender: FDA-Public Use
  Company Number: None

PATIENT
  Sex: Female
  Weight: 65.25 kg

DRUGS (2)
  1. DICLOMAX (DICLOFENAC SODIUM) [Suspect]
     Active Substance: DICLOFENAC SODIUM
     Indication: INFECTION
     Dosage: ?          QUANTITY:4 TABLET(S);OTHER FREQUENCY:ONCE;?
     Route: 048
     Dates: start: 20171125, end: 20171126
  2. DICLOMAX (DICLOFENAC SODIUM) [Suspect]
     Active Substance: DICLOFENAC SODIUM
     Indication: ANTIINFLAMMATORY THERAPY
     Dosage: ?          QUANTITY:4 TABLET(S);OTHER FREQUENCY:ONCE;?
     Route: 048
     Dates: start: 20171125, end: 20171126

REACTIONS (4)
  - Neck pain [None]
  - Abdominal pain upper [None]
  - Hallucination, auditory [None]
  - Chills [None]

NARRATIVE: CASE EVENT DATE: 20171125
